FAERS Safety Report 21619792 (Version 2)
Quarter: 2022Q4

REPORT INFORMATION
  Report Type: Spontaneous
  Country: PL (occurrence: PL)
  Receive Date: 20221121
  Receipt Date: 20221124
  Transmission Date: 20230113
  Serious: Yes (Other)
  Sender: FDA-Public Use
  Company Number: PL-TOLMAR, INC.-22PL037461

PATIENT
  Age: 78 Year

DRUGS (3)
  1. ELIGARD [Suspect]
     Active Substance: LEUPROLIDE ACETATE
     Indication: Prostate cancer
     Dosage: UNK
     Dates: start: 2010, end: 2013
  2. ELIGARD [Suspect]
     Active Substance: LEUPROLIDE ACETATE
     Dosage: UNK
     Dates: start: 201704
  3. RADIATION THERAPY [Suspect]
     Active Substance: RADIATION THERAPY
     Indication: Prostate cancer
     Dosage: DOSE UP TO 65 GY IN 25 FR
     Dates: start: 2010, end: 2013

REACTIONS (5)
  - Hormone-refractory prostate cancer [Unknown]
  - Prostatic specific antigen increased [Unknown]
  - Urinary retention [Unknown]
  - Spinal osteoarthritis [Unknown]
  - Radiation injury [Unknown]

NARRATIVE: CASE EVENT DATE: 20210801
